FAERS Safety Report 17417178 (Version 1)
Quarter: 2020Q1

REPORT INFORMATION
  Report Type: Spontaneous
  Country: FR (occurrence: FR)
  Receive Date: 20200214
  Receipt Date: 20200214
  Transmission Date: 20200409
  Serious: Yes (Hospitalization)
  Sender: FDA-Public Use
  Company Number: FR-SUN PHARMACEUTICAL INDUSTRIES LTD-2020RR-236693

PATIENT
  Age: 71 Year
  Sex: Male
  Weight: 86 kg

DRUGS (6)
  1. ATORVASTATINE [Concomitant]
     Active Substance: ATORVASTATIN
     Indication: PRODUCT USED FOR UNKNOWN INDICATION
     Dosage: ()
     Route: 065
  2. IMOVANE [Suspect]
     Active Substance: ZOPICLONE
     Indication: SLEEP DISORDER
     Dosage: 1 DOSAGE FORM, DAILY
     Route: 048
  3. RISPERIDONE. [Suspect]
     Active Substance: RISPERIDONE
     Indication: SCHIZOPHRENIA
     Dosage: 4 MILLIGRAM, DAILY
     Route: 048
  4. SERESTA [Suspect]
     Active Substance: OXAZEPAM
     Indication: SCHIZOPHRENIA
     Dosage: 1 DOSAGE FORM, DAILY
     Route: 048
  5. AMOXICILLINE ACIDE CLAVULANIQUE MYLAN [Suspect]
     Active Substance: AMOXICILLIN\CLAVULANIC ACID
     Indication: LUNG DISORDER
     Dosage: 1 DOSAGE FORM, 1DOSE/8HR
     Route: 042
     Dates: start: 20190501, end: 20190502
  6. CLOPIDOGREL [Concomitant]
     Active Substance: CLOPIDOGREL BISULFATE
     Indication: PRODUCT USED FOR UNKNOWN INDICATION
     Dosage: ()
     Route: 065

REACTIONS (1)
  - Disturbance in attention [Recovered/Resolved]

NARRATIVE: CASE EVENT DATE: 20190502
